FAERS Safety Report 6816881-8 (Version None)
Quarter: 2010Q3

REPORT INFORMATION
  Report Type: 
  Country: None (occurrence: None)
  Receive Date: 20100706
  Receipt Date: 20100628
  Transmission Date: 20110219
  Serious: Yes (Other)
  Sender: FDA-Public Use
  Company Number: JP-ASTRAZENECA-2010SE29875

PATIENT
  Age: 30 Year
  Sex: Female

DRUGS (4)
  1. SYMBICORT [Suspect]
     Indication: ASTHMA
     Dosage: 1 DF, FOUR TIMES A DAY.
     Route: 055
     Dates: start: 20100525
  2. SYMBICORT [Suspect]
     Route: 055
  3. SINGULAIR [Concomitant]
     Route: 048
     Dates: start: 20100525, end: 20100601
  4. THEOLONG [Concomitant]
     Route: 048
     Dates: start: 20100525, end: 20100601

REACTIONS (3)
  - HYPOAESTHESIA [None]
  - MUSCLE SPASMS [None]
  - TREMOR [None]
